FAERS Safety Report 9900643 (Version 1)
Quarter: 2014Q1

REPORT INFORMATION
  Report Type: Report from Study
  Country: US (occurrence: US)
  Receive Date: 20140217
  Receipt Date: 20140217
  Transmission Date: 20141002
  Serious: Yes (Other)
  Sender: FDA-Public Use
  Company Number: US-ROCHE-1343642

PATIENT
  Age: 71 Year
  Sex: Male

DRUGS (12)
  1. LUCENTIS [Suspect]
     Indication: DIABETIC RETINAL OEDEMA
     Dosage: IN BOTH THE EYES
     Route: 050
  2. LUCENTIS [Suspect]
     Dosage: BOTH THE EYES
     Route: 050
     Dates: start: 20110920
  3. LUCENTIS [Suspect]
     Dosage: IN BOTH THE EYES
     Route: 050
     Dates: start: 20111108
  4. LUCENTIS [Suspect]
     Dosage: IN BOTH THE EYES
     Route: 050
     Dates: start: 20111108
  5. LUCENTIS [Suspect]
     Route: 050
     Dates: start: 20111220
  6. LUCENTIS [Suspect]
     Route: 050
     Dates: start: 20120131
  7. LUCENTIS [Suspect]
     Route: 050
     Dates: start: 20120320
  8. BEVACIZUMAB [Suspect]
     Indication: PRODUCT USED FOR UNKNOWN INDICATION
     Route: 065
  9. ALCAINE [Concomitant]
     Route: 065
  10. ZYMAXID [Concomitant]
     Route: 065
  11. BETADINE [Concomitant]
  12. GENTAMICIN [Concomitant]
     Route: 065

REACTIONS (3)
  - Ocular hyperaemia [Unknown]
  - Off label use [Unknown]
  - Cutis laxa [Unknown]
